FAERS Safety Report 7728170-8 (Version None)
Quarter: 2011Q3

REPORT INFORMATION
  Report Type: 
  Country: None (occurrence: None)
  Receive Date: 20110905
  Receipt Date: 20110830
  Transmission Date: 20111222
  Serious: Yes (Hospitalization)
  Sender: FDA-Public Use
  Company Number: US-AMGEN-USASP2011044479

PATIENT
  Sex: Female

DRUGS (5)
  1. CALCIUM W/VITAMIN D                /01438101/ [Concomitant]
  2. ASPIRIN [Concomitant]
     Dosage: UNK
  3. TOPAMAX [Concomitant]
  4. PROLIA [Suspect]
     Indication: OSTEOPOROSIS POSTMENOPAUSAL
     Dosage: UNK
     Dates: start: 20110301
  5. INSULIN [Concomitant]

REACTIONS (1)
  - ABDOMINAL ABSCESS [None]
